FAERS Safety Report 8354259 (Version 3)
Quarter: 2012Q4

REPORT INFORMATION
  Report Type: 
  Country: NL (occurrence: NL)
  Receive Date: 20120125
  Receipt Date: 20121212
  Transmission Date: 20130627
  Serious: Yes (Other)
  Sender: FDA-Public Use
  Company Number: PHHY2012NL005985

PATIENT
  Sex: Male

DRUGS (5)
  1. ZOMETA [Suspect]
     Indication: PROSTATE CANCER METASTATIC
     Dosage: 4 mg/ 5 ml once per 8 weeks
     Route: 042
     Dates: start: 20110509
  2. ZOMETA [Suspect]
     Dosage: 4 mg/ 5 ml once per 8 weeks
     Route: 042
     Dates: start: 20111129
  3. ZOMETA [Suspect]
     Dosage: 4 mg/ 5 ml once per 8 weeks
     Route: 042
     Dates: start: 20120123
  4. ZOMETA [Suspect]
     Dosage: 4 mg/ 5 ml once per 8 weeks
     Route: 042
     Dates: start: 20120828
  5. ZOMETA [Suspect]
     Dosage: 4 mg/ 5 ml once per 8 weeks
     Route: 042
     Dates: start: 20121112

REACTIONS (3)
  - Terminal state [Unknown]
  - General physical health deterioration [Not Recovered/Not Resolved]
  - Pain in extremity [Not Recovered/Not Resolved]
